FAERS Safety Report 14758685 (Version 2)
Quarter: 2018Q2

REPORT INFORMATION
  Report Type: Spontaneous
  Country: CN (occurrence: CN)
  Receive Date: 20180413
  Receipt Date: 20180423
  Transmission Date: 20180711
  Serious: Yes (Hospitalization, Other)
  Sender: FDA-Public Use
  Company Number: CN-PFIZER INC-2018150601

PATIENT
  Age: 58 Year
  Sex: Female
  Weight: 58 kg

DRUGS (7)
  1. METHOTREXATE. [Concomitant]
     Active Substance: METHOTREXATE
     Dosage: UNK
  2. HYDROXYCHLOROQUINE [Concomitant]
     Active Substance: HYDROXYCHLOROQUINE
     Dosage: UNK
  3. GLUCOBAY [Concomitant]
     Active Substance: ACARBOSE
     Dosage: UNK
  4. IGURATIMOD [Concomitant]
     Active Substance: IGURATIMOD
     Dosage: UNK
  5. TECHNETIUM TC 99M METHYLENE DIPHOSPHONATE [Concomitant]
     Dosage: UNK
  6. CALCIUM [Concomitant]
     Active Substance: CALCIUM
     Dosage: UNK
  7. CELEBREX [Suspect]
     Active Substance: CELECOXIB
     Indication: RHEUMATOID ARTHRITIS
     Dosage: 0.2 G, 2X/DAY (AFTERNOON OF 04APR2018 TO THE MORNING OF 05APR2018)
     Route: 048
     Dates: start: 20180404, end: 20180405

REACTIONS (3)
  - Blindness [Recovering/Resolving]
  - Glaucoma [Recovering/Resolving]
  - Condition aggravated [Recovering/Resolving]

NARRATIVE: CASE EVENT DATE: 20180404
